FAERS Safety Report 20575460 (Version 2)
Quarter: 2022Q2

REPORT INFORMATION
  Report Type: Spontaneous
  Country: JP (occurrence: JP)
  Receive Date: 20220310
  Receipt Date: 20220512
  Transmission Date: 20220721
  Serious: Yes (Other)
  Sender: FDA-Public Use
  Company Number: JP-GEHPL-2022JSU001434AA

PATIENT
  Age: 80 Year
  Sex: Male
  Weight: 48 kg

DRUGS (2)
  1. OMNIPAQUE [Suspect]
     Active Substance: IOHEXOL
     Indication: Computerised tomogram abdomen
     Dosage: 112 ML, SINGLE
     Route: 042
     Dates: start: 20220303, end: 20220303
  2. OMNIPAQUE [Suspect]
     Active Substance: IOHEXOL
     Indication: Colon cancer

REACTIONS (6)
  - Sneezing [Recovering/Resolving]
  - Eye pruritus [Recovering/Resolving]
  - Rash [Recovering/Resolving]
  - Eyelid oedema [Recovering/Resolving]
  - Erythema [Recovering/Resolving]
  - Lacrimation increased [Recovering/Resolving]

NARRATIVE: CASE EVENT DATE: 20220303
